FAERS Safety Report 13704532 (Version 1)
Quarter: 2017Q2

REPORT INFORMATION
  Report Type: Spontaneous
  Country: US (occurrence: US)
  Receive Date: 20170629
  Receipt Date: 20170629
  Transmission Date: 20170830
  Serious: No
  Sender: FDA-Public Use
  Company Number: None

PATIENT
  Age: 25 Year
  Sex: Female
  Weight: 66.6 kg

DRUGS (1)
  1. TALTZ [Suspect]
     Active Substance: IXEKIZUMAB
     Indication: PSORIASIS
     Dosage: ?          OTHER DOSE:MG;OTHER FREQUENCY:Q 2 WKS;?
     Route: 058

REACTIONS (7)
  - Injection site erythema [None]
  - Injection site bruising [None]
  - Injection site swelling [None]
  - Injection site rash [None]
  - Injection site reaction [None]
  - Injection site pain [None]
  - Injection site pruritus [None]
